FAERS Safety Report 7304643-7 (Version None)
Quarter: 2011Q1

REPORT INFORMATION
  Report Type: 
  Country: None (occurrence: None)
  Receive Date: 20110222
  Receipt Date: 20110208
  Transmission Date: 20110831
  Serious: Yes (Hospitalization, Other)
  Sender: FDA-Public Use
  Company Number: IN-PAR PHARMACEUTICAL, INC-2011SCPR002681

PATIENT
  Age: 4 Year
  Sex: Male
  Weight: 15 kg

DRUGS (3)
  1. ONDANSETRON [Suspect]
     Indication: VOMITING
  2. ONDANSETRON [Suspect]
     Indication: ABDOMINAL PAIN
     Dosage: 2 MG, (0.13 MG/KG)
     Route: 042
  3. ONDANSETRON [Suspect]
     Indication: DIARRHOEA

REACTIONS (3)
  - GRAND MAL CONVULSION [None]
  - DYSTONIA [None]
  - HYPOGLYCAEMIA [None]
